FAERS Safety Report 5699158-6 (Version None)
Quarter: 2008Q2

REPORT INFORMATION
  Report Type: 
  Country: None (occurrence: None)
  Receive Date: 20080407
  Receipt Date: 20080407
  Transmission Date: 20081010
  Serious: Yes (Other)
  Sender: FDA-Public Use
  Company Number: None

PATIENT
  Sex: Female
  Weight: 87.0906 kg

DRUGS (3)
  1. TAMIFLU [Suspect]
     Indication: INFLUENZA
     Dosage: 1 TWICE DAILY PO
     Route: 048
     Dates: start: 20080402, end: 20080403
  2. LIPITOR [Concomitant]
  3. STEROID NASAL SPRAY [Concomitant]

REACTIONS (6)
  - AMNESIA [None]
  - DELIRIUM [None]
  - EMOTIONAL DISORDER [None]
  - EXTRAPYRAMIDAL DISORDER [None]
  - PERSONALITY CHANGE [None]
  - TARDIVE DYSKINESIA [None]
